FAERS Safety Report 7277527-0 (Version None)
Quarter: 2011Q1

REPORT INFORMATION
  Report Type: 
  Country: None (occurrence: None)
  Receive Date: 20110207
  Receipt Date: 20110125
  Transmission Date: 20110831
  Serious: Yes (Hospitalization)
  Sender: FDA-Public Use
  Company Number: US-ELI_LILLY_AND_COMPANY-US201006002846

PATIENT
  Sex: Female

DRUGS (9)
  1. FORTEO [Suspect]
     Dosage: 20 UG, DAILY (1/D)
  2. VITAMIN D [Concomitant]
     Indication: VITAMIN D DECREASED
     Dosage: 1000 U, DAILY (1/D)
  3. VITAMIN D [Concomitant]
     Dosage: 1000 MG, DAILY (1/D)
  4. CALCIUM [Concomitant]
     Dosage: 600 MG, DAILY (1/D)
  5. FORTEO [Suspect]
     Indication: OSTEOPOROSIS
     Dosage: 20 UG, DAILY (1/D)
     Route: 058
     Dates: start: 20100527, end: 20100609
  6. FORTEO [Suspect]
     Dosage: 20 UG, DAILY (1/D)
  7. MULTIVITAMIN [Concomitant]
     Dosage: UNK, DAILY (1/D)
  8. FORTEO [Suspect]
     Dosage: 20 UG, DAILY (1/D)
     Dates: start: 20100709
  9. MECLIZINE [Concomitant]
     Indication: VERTIGO

REACTIONS (13)
  - INJECTION SITE HAEMORRHAGE [None]
  - VERTIGO [None]
  - OEDEMA PERIPHERAL [None]
  - MUSCLE DISORDER [None]
  - NAUSEA [None]
  - BACK PAIN [None]
  - GAIT DISTURBANCE [None]
  - SCOLIOSIS [None]
  - PAIN IN EXTREMITY [None]
  - OSTEOPOROSIS [None]
  - INJECTION SITE HAEMATOMA [None]
  - DIZZINESS [None]
  - SOMNOLENCE [None]
